FAERS Safety Report 22656722 (Version 1)
Quarter: 2023Q2

REPORT INFORMATION
  Report Type: Report from Study
  Country: US (occurrence: US)
  Receive Date: 20230630
  Receipt Date: 20230630
  Transmission Date: 20230721
  Serious: Yes (Hospitalization, Other)
  Sender: FDA-Public Use
  Company Number: US-ABBVIE-5308096

PATIENT
  Age: 77 Year
  Sex: Female

DRUGS (1)
  1. HUMIRA [Suspect]
     Active Substance: ADALIMUMAB
     Indication: Product used for unknown indication
     Route: 058
     Dates: start: 20220626, end: 20230127

REACTIONS (8)
  - Rheumatoid arthritis [Not Recovered/Not Resolved]
  - Hypersomnia [Unknown]
  - COVID-19 [Recovering/Resolving]
  - Brain fog [Recovering/Resolving]
  - Grip strength decreased [Unknown]
  - Mobility decreased [Unknown]
  - Muscle spasms [Unknown]
  - Fall [Unknown]

NARRATIVE: CASE EVENT DATE: 20230110
